FAERS Safety Report 14441890 (Version 1)
Quarter: 2018Q1

REPORT INFORMATION
  Report Type: Spontaneous
  Country: RO (occurrence: RO)
  Receive Date: 20180125
  Receipt Date: 20180125
  Transmission Date: 20180509
  Serious: Yes (Death, Hospitalization, Other)
  Sender: FDA-Public Use
  Company Number: RO-MYLANLABS-2018M1005276

PATIENT
  Age: 18 Month
  Sex: Female

DRUGS (2)
  1. IBUPROFEN. [Suspect]
     Active Substance: IBUPROFEN
     Indication: PYREXIA
  2. AMOXICILLIN CLAVULANIC ACID [Concomitant]
     Active Substance: AMOXICILLIN\CLAVULANIC ACID
     Indication: PYREXIA

REACTIONS (10)
  - Oedema peripheral [Fatal]
  - Haemorrhagic pneumonia [Fatal]
  - Confusional state [Unknown]
  - Dyspnoea [Unknown]
  - Hepatic congestion [Fatal]
  - Anxiety [Unknown]
  - Loss of consciousness [Fatal]
  - Anuria [Fatal]
  - Wheezing [Unknown]
  - Cardiac arrest [Fatal]
